FAERS Safety Report 4727030-4 (Version None)
Quarter: 2005Q3

REPORT INFORMATION
  Report Type: 
  Country: None (occurrence: None)
  Receive Date: 20050726
  Receipt Date: 20050705
  Transmission Date: 20060218
  Serious: Yes (Hospitalization)
  Sender: FDA-Public Use
  Company Number: DSA_60502_2005

PATIENT
  Sex: Female

DRUGS (1)
  1. DIASTAT [Suspect]
     Indication: CONVULSION
     Dosage: 60 MG ONCE
     Dates: start: 20050601

REACTIONS (3)
  - MEDICATION ERROR [None]
  - RESPIRATORY ARREST [None]
  - SELF-MEDICATION [None]
